FAERS Safety Report 9238080 (Version 2)
Quarter: 2014Q1

REPORT INFORMATION
  Report Type: Spontaneous
  Country: US (occurrence: None)
  Receive Date: 20121106
  Receipt Date: 20130305
  Transmission Date: 20141002
  Serious: No
  Sender: FDA-Public Use
  Company Number: 1000038318

PATIENT
  Age: 76 Year
  Sex: Male
  Weight: 88 kg

DRUGS (5)
  1. DALIRESP [Suspect]
     Indication: ASTHMA
     Dosage: (500 MCG, 1 IN 1 D)
     Dates: start: 20120823, end: 20120830
  2. DALIRESP [Suspect]
     Indication: CHRONIC OBSTRUCTIVE PULMONARY DISEASE
     Dosage: (500 MCG, 1 IN 1 D)
     Dates: start: 20120823, end: 20120830
  3. ADVAIR (SERETIDE) (SERETIDE) [Concomitant]
  4. COMBIVENT [Concomitant]
  5. DALIRESP (ROFLUMILAST) (500 MICROGRAM, TABLETS) [Suspect]
     Indication: CHRONIC OBSTRUCTIVE PULMONARY DISEASE
     Route: 048
     Dates: start: 201209, end: 20121109

REACTIONS (5)
  - Abdominal pain upper [None]
  - Constipation [None]
  - Flatulence [None]
  - Weight decreased [None]
  - Swollen tongue [None]
